FAERS Safety Report 5735758-2 (Version None)
Quarter: 2008Q2

REPORT INFORMATION
  Report Type: 
  Country: None (occurrence: None)
  Receive Date: 20080513
  Receipt Date: 20080507
  Transmission Date: 20081010
  Serious: Yes (Hospitalization)
  Sender: FDA-Public Use
  Company Number: JP-BRISTOL-MYERS SQUIBB COMPANY-14129548

PATIENT
  Age: 9 Decade
  Sex: Male

DRUGS (1)
  1. GATIFLOXACIN [Suspect]
     Route: 048
     Dates: start: 20080201, end: 20080302

REACTIONS (1)
  - RHABDOMYOLYSIS [None]
